FAERS Safety Report 9573233 (Version 2)
Quarter: 2013Q4

REPORT INFORMATION
  Report Type: Spontaneous
  Country: US (occurrence: US)
  Receive Date: 20131001
  Receipt Date: 20131001
  Transmission Date: 20140711
  Serious: No
  Sender: FDA-Public Use
  Company Number: US-PURDUE-USA-2012-0082274

PATIENT
  Sex: Female
  Weight: 40.36 kg

DRUGS (6)
  1. BUTRANS [Suspect]
     Indication: PAIN
     Dosage: 5 MCG, UNK
     Route: 062
     Dates: start: 20120205
  2. BUTRANS [Suspect]
     Dosage: 10 MCG/HR, WEEKLY
     Route: 062
  3. BUTRANS [Suspect]
     Dosage: 5 MCG/HR, WEEKLY
     Route: 062
  4. VALIUM /00017001/ [Suspect]
     Indication: PAIN
     Dosage: 5 MG, UNK 1/2 TABLET AT NIGHT
  5. VALIUM /00017001/ [Suspect]
     Indication: INSOMNIA
  6. BENADRYL /00000402/ [Suspect]
     Indication: INSOMNIA
     Dosage: 25 MG, UNK

REACTIONS (10)
  - Drug effect increased [Unknown]
  - General physical health deterioration [Unknown]
  - Dizziness [Not Recovered/Not Resolved]
  - Pruritus [Not Recovered/Not Resolved]
  - Rash [Not Recovered/Not Resolved]
  - Tremor [Recovered/Resolved]
  - Drug effect decreased [Not Recovered/Not Resolved]
  - Fatigue [Unknown]
  - Malaise [Unknown]
  - Product packaging issue [Unknown]
